FAERS Safety Report 18542893 (Version 1)
Quarter: 2020Q4

REPORT INFORMATION
  Report Type: Report from Study
  Country: US (occurrence: US)
  Receive Date: 20201124
  Receipt Date: 20201124
  Transmission Date: 20210114
  Serious: Yes (Hospitalization)
  Sender: FDA-Public Use
  Company Number: US-TAKEDA-US201943893

PATIENT
  Age: 7 Year
  Sex: Male

DRUGS (1)
  1. ELAPRASE [Suspect]
     Active Substance: IDURSULFASE
     Indication: MUCOPOLYSACCHARIDOSIS II
     Dosage: 24 MILLIGRAM, 1X/WEEK
     Route: 042
     Dates: start: 201303

REACTIONS (4)
  - Gastroenteritis viral [Not Recovered/Not Resolved]
  - Influenza like illness [Unknown]
  - Product dose omission issue [Unknown]
  - Vascular access complication [Unknown]

NARRATIVE: CASE EVENT DATE: 20191207
